FAERS Safety Report 6372000-6 (Version None)
Quarter: 2009Q3

REPORT INFORMATION
  Report Type: 
  Country: None (occurrence: None)
  Receive Date: 20090917
  Receipt Date: 20090904
  Transmission Date: 20100115
  Serious: Yes (Death)
  Sender: FDA-Public Use
  Company Number: ADR16582009

PATIENT
  Sex: Male

DRUGS (12)
  1. CITALOPRAM HYDROBROMIDE [Suspect]
  2. SALBUTAMOL      (MFR. UNKNOWN) [Suspect]
  3. COMBIVENT METERED AEROSOL [Concomitant]
  4. LOSARTAN [Concomitant]
  5. MOMETASONE FUROATE [Concomitant]
  6. NYSTATIN [Concomitant]
  7. OXYGEN [Concomitant]
  8. PHOLCODINE [Concomitant]
  9. SERETIDE [Concomitant]
  10. SPRIVA [Concomitant]
  11. XALATAN [Concomitant]
  12. ZOPICLONE [Concomitant]

REACTIONS (1)
  - CHRONIC OBSTRUCTIVE PULMONARY DISEASE [None]
